FAERS Safety Report 8420375-6 (Version None)
Quarter: 2012Q2

REPORT INFORMATION
  Report Type: 
  Country: None (occurrence: None)
  Receive Date: 20120607
  Receipt Date: 20120607
  Transmission Date: 20120825
  Serious: Yes (Other)
  Sender: FDA-Public Use
  Company Number: CA-ABBOTT-12P-028-0943522-00

PATIENT
  Sex: Female

DRUGS (1)
  1. VALPROIC ACID [Suspect]
     Indication: PRODUCT USED FOR UNKNOWN INDICATION

REACTIONS (3)
  - HYPOPHOSPHATAEMIC RICKETS [None]
  - FANCONI SYNDROME [None]
  - NEPHROCALCINOSIS [None]
